FAERS Safety Report 19083915 (Version 7)
Quarter: 2022Q2

REPORT INFORMATION
  Report Type: Spontaneous
  Country: FR (occurrence: FR)
  Receive Date: 20210401
  Receipt Date: 20220630
  Transmission Date: 20220720
  Serious: Yes (Hospitalization, Other)
  Sender: FDA-Public Use
  Company Number: FR-BIOGARAN-B21000362

PATIENT
  Age: 82 Year
  Sex: Female

DRUGS (5)
  1. BETAMETHASONE [Suspect]
     Active Substance: BETAMETHASONE
     Indication: Pneumonitis
     Dosage: 6 MILLIGRAM
     Dates: start: 202007, end: 2020
  2. BETAMETHASONE [Suspect]
     Active Substance: BETAMETHASONE
     Dosage: 1 MILLIGRAM
     Dates: start: 2020, end: 2020
  3. GEFITINIB [Suspect]
     Active Substance: GEFITINIB
     Indication: Lung adenocarcinoma
     Dosage: UNK
     Dates: start: 2020
  4. OSIMERTINIB [Concomitant]
     Active Substance: OSIMERTINIB
     Indication: Lung adenocarcinoma
     Dosage: UNK
     Dates: end: 2020
  5. HYDROCORTISONE [Concomitant]
     Active Substance: HYDROCORTISONE
     Indication: Pneumonitis
     Dosage: 20 MILLIGRAM
     Dates: start: 2020

REACTIONS (2)
  - Pneumocystis jirovecii pneumonia [Recovered/Resolved]
  - Product use in unapproved indication [Unknown]

NARRATIVE: CASE EVENT DATE: 20200701
